FAERS Safety Report 4603627-7 (Version None)
Quarter: 2005Q1

REPORT INFORMATION
  Report Type: 
  Country: None (occurrence: None)
  Receive Date: 20050308
  Receipt Date: 20050222
  Transmission Date: 20050727
  Serious: Yes (Hospitalization)
  Sender: FDA-Public Use
  Company Number: 212626

PATIENT
  Age: 66 Year
  Sex: Female

DRUGS (3)
  1. RITUXAN [Suspect]
     Indication: NON-HODGKIN'S LYMPHOMA
     Dosage: 473 MG, INTRAVENOUS
     Route: 042
     Dates: start: 20030610, end: 20030926
  2. VINCRISTINE [Concomitant]
  3. PREDNISONE [Concomitant]

REACTIONS (4)
  - GLOMERULONEPHRITIS [None]
  - NEPHRITIS [None]
  - RENAL IMPAIRMENT [None]
  - STEM CELL TRANSPLANT [None]
